FAERS Safety Report 9785280 (Version 1)
Quarter: 2013Q4

REPORT INFORMATION
  Report Type: Spontaneous
  Country: US (occurrence: US)
  Receive Date: 20131227
  Receipt Date: 20131227
  Transmission Date: 20140711
  Serious: No
  Sender: FDA-Public Use
  Company Number: US-B.I. PHARMACEUTICALS,INC./RIDGEFIELD-2013-BI-41879BP

PATIENT
  Age: 64 Year
  Sex: Female
  Weight: 50 kg

DRUGS (2)
  1. SPIRIVA [Suspect]
     Indication: OBSTRUCTIVE AIRWAYS DISORDER
     Dosage: 18 MCG
     Route: 055
     Dates: start: 2011
  2. LORAZEPAM [Concomitant]
     Indication: ANXIETY
     Dosage: 3 MG
     Route: 048

REACTIONS (3)
  - Nasopharyngitis [Recovered/Resolved]
  - Nodule [Not Recovered/Not Resolved]
  - Off label use [Unknown]
